FAERS Safety Report 6832576-9 (Version None)
Quarter: 2010Q3

REPORT INFORMATION
  Report Type: 
  Country: None (occurrence: None)
  Receive Date: 20100712
  Receipt Date: 20100630
  Transmission Date: 20110219
  Serious: Yes (Other)
  Sender: FDA-Public Use
  Company Number: NO-WATSON-2010-09059

PATIENT
  Age: 55 Year
  Sex: Male

DRUGS (2)
  1. SIMVASTATIN (WATSON LABORATORIES) [Suspect]
     Indication: PRODUCT USED FOR UNKNOWN INDICATION
     Dosage: UNK
  2. CIPRALEX                           /01588501/ [Suspect]
     Indication: DEPRESSION
     Dosage: UNK
     Dates: start: 20091201, end: 20100301

REACTIONS (3)
  - ANXIETY [None]
  - CHEST DISCOMFORT [None]
  - EXTRASYSTOLES [None]
